FAERS Safety Report 22171169 (Version 1)
Quarter: 2023Q2

REPORT INFORMATION
  Report Type: Spontaneous
  Country: US (occurrence: None)
  Receive Date: 20230404
  Receipt Date: 20230404
  Transmission Date: 20230722
  Serious: Yes (Hospitalization)
  Sender: FDA-Public Use
  Company Number: US-ROCHE-3323380

PATIENT
  Sex: Female

DRUGS (3)
  1. XOLAIR [Suspect]
     Active Substance: OMALIZUMAB
     Indication: Idiopathic urticaria
     Dosage: STRENGTH: 150MG/ML?INJECT 2 SYRINGES (300MG) UNDER THE SKIN (SUBCUTANEOUS INJECTION) EVERY 28 DAYS
     Route: 058
     Dates: start: 20210316
  2. RINVOQ [Concomitant]
     Active Substance: UPADACITINIB
  3. SIMPONI [Concomitant]
     Active Substance: GOLIMUMAB

REACTIONS (1)
  - Meningitis [Unknown]
